FAERS Safety Report 14835003 (Version 12)
Quarter: 2018Q4

REPORT INFORMATION
  Report Type: Report from Study
  Country: US (occurrence: US)
  Receive Date: 20180501
  Receipt Date: 20181205
  Transmission Date: 20190204
  Serious: Yes (Other)
  Sender: FDA-Public Use
  Company Number: US-MALLINCKRODT-T201801007

PATIENT
  Age: 58 Year
  Sex: Female

DRUGS (11)
  1. REPOSITORY CORTICOTROPIN INJECTION [Suspect]
     Active Substance: CORTICOTROPIN
     Dosage: 40 UNITS / .5 ML 1 TIME WEEKLY WEDNESDAY 4/25
     Route: 058
     Dates: start: 2018, end: 2018
  2. REPOSITORY CORTICOTROPIN INJECTION [Suspect]
     Active Substance: CORTICOTROPIN
     Dosage: 20 UNITS FOR 3 TIMES PER WEEK
     Route: 058
     Dates: start: 2018, end: 2018
  3. REPOSITORY CORTICOTROPIN INJECTION [Suspect]
     Active Substance: CORTICOTROPIN
     Indication: SARCOIDOSIS
     Dosage: 80 UNITS/1ML, 2 TIMES PER WEEK (TUESDAY/FRIDAY)
     Route: 058
     Dates: start: 20180227, end: 2018
  4. REPOSITORY CORTICOTROPIN INJECTION [Suspect]
     Active Substance: CORTICOTROPIN
     Dosage: 80 UNITS / 1 ML 2 TIMES PER WEEK MONDAY/FRIDAY
     Route: 058
     Dates: start: 2018, end: 2018
  5. REPOSITORY CORTICOTROPIN INJECTION [Suspect]
     Active Substance: CORTICOTROPIN
     Dosage: 80 UNITS/1ML 2 TIMES PER WEEK MONDAY/FRIDAY
     Route: 058
     Dates: start: 2018
  6. PREDNISONE. [Suspect]
     Active Substance: PREDNISONE
     Dosage: 2.5 MG, QD (DAILY)
     Route: 065
     Dates: end: 20180815
  7. PREDNISONE. [Suspect]
     Active Substance: PREDNISONE
     Dosage: 5 MG, UNK
     Route: 065
     Dates: start: 2018
  8. REPOSITORY CORTICOTROPIN INJECTION [Suspect]
     Active Substance: CORTICOTROPIN
     Dosage: 80 UNITS / 1 ML 2 TIMES PER WEEK MONDAY AND THURSDAY
     Route: 058
     Dates: start: 20180613, end: 2018
  9. PREDNISONE. [Suspect]
     Active Substance: PREDNISONE
     Dosage: 7.5 MG, UNK
     Route: 065
     Dates: start: 2018
  10. REPOSITORY CORTICOTROPIN INJECTION [Suspect]
     Active Substance: CORTICOTROPIN
     Dosage: 80 UNITS/1ML, ONCE A WEEK FOR 4 WEEKS
     Route: 058
     Dates: start: 2018, end: 2018
  11. PREDNISONE. [Suspect]
     Active Substance: PREDNISONE
     Indication: PRODUCT USED FOR UNKNOWN INDICATION
     Dosage: 2.5 MG,2.5MG ONE DAY AND THEN 5 MG THE NEXT DAY FOR 2 MORE WEEKS
     Route: 065

REACTIONS (16)
  - Contusion [Not Recovered/Not Resolved]
  - Arthralgia [Not Recovered/Not Resolved]
  - Lymphadenopathy [Recovered/Resolved]
  - Muscle tightness [Unknown]
  - Fatigue [Not Recovered/Not Resolved]
  - Dyspnoea [Recovering/Resolving]
  - Colonoscopy [Unknown]
  - Back pain [Not Recovered/Not Resolved]
  - Pruritus [Recovering/Resolving]
  - Headache [Unknown]
  - Urinary tract infection [Not Recovered/Not Resolved]
  - Mood altered [Not Recovered/Not Resolved]
  - Pain in extremity [Unknown]
  - Stress [Unknown]
  - Gait disturbance [Unknown]
  - Withdrawal syndrome [Not Recovered/Not Resolved]

NARRATIVE: CASE EVENT DATE: 2018
